FAERS Safety Report 4549649-6 (Version None)
Quarter: 2005Q1

REPORT INFORMATION
  Report Type: 
  Country: None (occurrence: None)
  Receive Date: 20050111
  Receipt Date: 20041209
  Transmission Date: 20050727
  Serious: Yes (Other)
  Sender: FDA-Public Use
  Company Number: FR-GLAXOSMITHKLINE-B0360021A

PATIENT
  Age: 45 Year
  Sex: Male

DRUGS (1)
  1. MALARONE [Suspect]
     Indication: MALARIA PROPHYLAXIS
     Route: 048
     Dates: start: 20030401

REACTIONS (5)
  - ALOPECIA [None]
  - FURUNCLE [None]
  - HYPERHIDROSIS [None]
  - MOUTH ULCERATION [None]
  - ORAL PAIN [None]
